FAERS Safety Report 8824021 (Version 2)
Quarter: 2012Q4

REPORT INFORMATION
  Report Type: Report from Study
  Country: IL (occurrence: IL)
  Receive Date: 20121003
  Receipt Date: 20121119
  Transmission Date: 20130627
  Serious: Yes (Hospitalization)
  Sender: FDA-Public Use
  Company Number: IL-ROCHE-1136710

PATIENT
  Age: 56 Year
  Sex: Female
  Weight: 56 kg

DRUGS (6)
  1. TOCILIZUMAB [Suspect]
     Indication: RHEUMATOID ARTHRITIS
     Dosage: last dose prior to SAE: 16/Aug/2012
     Route: 042
     Dates: start: 20110725, end: 20120920
  2. TOCILIZUMAB [Suspect]
     Route: 042
     Dates: start: 20121113
  3. FOSALAN [Concomitant]
     Route: 048
     Dates: start: 20041114
  4. CALCIUM/VITAMIN D [Concomitant]
     Route: 065
  5. MTX [Concomitant]
     Route: 065
     Dates: start: 20111114
  6. FOLIC ACID [Concomitant]
     Route: 065
     Dates: start: 19950403

REACTIONS (1)
  - Femoral neck fracture [Recovered/Resolved]
